FAERS Safety Report 8522099-3 (Version None)
Quarter: 2012Q3

REPORT INFORMATION
  Report Type: 
  Country: None (occurrence: None)
  Receive Date: 20120719
  Receipt Date: 20120713
  Transmission Date: 20120928
  Serious: Yes (Other)
  Sender: FDA-Public Use
  Company Number: US-MPIJNJ-2012-04904

PATIENT
  Sex: Female

DRUGS (2)
  1. VELCADE [Suspect]
     Indication: RENAL TRANSPLANT
     Dosage: UNK
  2. RITUXIMAB [Suspect]
     Indication: RENAL TRANSPLANT
     Dosage: 1000 MG, UNK
     Route: 042
     Dates: start: 20120703, end: 20120703

REACTIONS (4)
  - DIZZINESS [None]
  - HYPERTENSION [None]
  - THROAT IRRITATION [None]
  - TACHYCARDIA [None]
